FAERS Safety Report 5261005-4 (Version None)
Quarter: 2007Q1

REPORT INFORMATION
  Report Type: 
  Country: None (occurrence: None)
  Receive Date: 20070306
  Receipt Date: 20070220
  Transmission Date: 20070707
  Serious: Yes (Death, Hospitalization)
  Sender: FDA-Public Use
  Company Number: 2007RR-05898

PATIENT
  Sex: Female

DRUGS (2)
  1. FUROSEMIDE [Suspect]
     Dosage: SEE IMAGE
     Dates: start: 20060315
  2. SPIRONOLACTONE [Concomitant]

REACTIONS (7)
  - CONVULSION [None]
  - DEHYDRATION [None]
  - DRUG DISPENSING ERROR [None]
  - DRUG TOXICITY [None]
  - HYPOVOLAEMIA [None]
  - HYPOXIC ENCEPHALOPATHY [None]
  - OVERDOSE [None]
